FAERS Safety Report 9614239 (Version 1)
Quarter: 2013Q4

REPORT INFORMATION
  Report Type: Spontaneous
  Country: US (occurrence: US)
  Receive Date: 20131011
  Receipt Date: 20131011
  Transmission Date: 20140711
  Serious: Yes (Hospitalization)
  Sender: FDA-Public Use
  Company Number: US-BRISTOL-MYERS SQUIBB COMPANY-19573328

PATIENT
  Sex: 0

DRUGS (1)
  1. ORENCIA [Suspect]
     Dosage: LAST DOSE 1 MONTH AGO
     Route: 042

REACTIONS (1)
  - Cardiac failure congestive [Unknown]
